FAERS Safety Report 24222972 (Version 1)
Quarter: 2024Q3

REPORT INFORMATION
  Report Type: Spontaneous
  Country: US (occurrence: None)
  Receive Date: 20240816
  Receipt Date: 20240816
  Transmission Date: 20241016
  Serious: Yes (Disabling)
  Sender: Public
  Company Number: None

PATIENT
  Age: 61 Year
  Sex: Female
  Weight: 107.1 kg

DRUGS (7)
  1. JARDIANCE [Suspect]
     Active Substance: EMPAGLIFLOZIN
     Indication: Blood glucose increased
     Dosage: 1 TABLET ORAL
     Route: 048
     Dates: start: 20240626, end: 20240816
  2. VALSARTAN [Concomitant]
  3. FLUOXETINE [Concomitant]
  4. VITAMIN D3 [Concomitant]
     Active Substance: CHOLECALCIFEROL
  5. PHENTERMINE [Concomitant]
  6. BIOTIN [Concomitant]
  7. ESOMEPRAZOLE MAGNESIUM [Concomitant]
     Active Substance: ESOMEPRAZOLE MAGNESIUM

REACTIONS (9)
  - Arthralgia [None]
  - Restless legs syndrome [None]
  - Pain in extremity [None]
  - Pain in extremity [None]
  - Motor dysfunction [None]
  - Gait disturbance [None]
  - Arthralgia [None]
  - Therapy cessation [None]
  - Product complaint [None]

NARRATIVE: CASE EVENT DATE: 20240715
